FAERS Safety Report 5407746-7 (Version None)
Quarter: 2007Q3

REPORT INFORMATION
  Report Type: 
  Country: None (occurrence: None)
  Receive Date: 20070803
  Receipt Date: 20070723
  Transmission Date: 20080115
  Serious: Yes (Other)
  Sender: FDA-Public Use
  Company Number: THYR-10473

PATIENT
  Sex: Female

DRUGS (6)
  1. THYROGEN. MFR: ENZYME [Suspect]
     Indication: DRUG USE FOR UNKNOWN INDICATION
     Dates: start: 20070716, end: 20070717
  2. TEGRETOL [Concomitant]
  3. PREVACID [Concomitant]
  4. ALLEGRA [Concomitant]
  5. MULTIVITAMIN [Concomitant]
  6. LEVOTHYROXINE SODIUM [Concomitant]

REACTIONS (2)
  - AXILLARY MASS [None]
  - PAIN [None]
